FAERS Safety Report 20550904 (Version 1)
Quarter: 2022Q1

REPORT INFORMATION
  Report Type: Spontaneous
  Country: JP (occurrence: JP)
  Receive Date: 20220304
  Receipt Date: 20220304
  Transmission Date: 20220423
  Serious: Yes (Hospitalization, Other)
  Sender: FDA-Public Use
  Company Number: JP-009507513-2203JPN000898

PATIENT
  Age: 49 Year
  Sex: Female

DRUGS (9)
  1. PEMBROLIZUMAB [Suspect]
     Active Substance: PEMBROLIZUMAB
     Indication: Oropharyngeal cancer recurrent
     Dosage: EVERY3 WEEEKS, CYCL
  2. PEMBROLIZUMAB [Suspect]
     Active Substance: PEMBROLIZUMAB
     Indication: Oropharyngeal cancer stage IV
  3. LEVOTHYROXINE [Concomitant]
     Active Substance: LEVOTHYROXINE
     Indication: Post procedural hypothyroidism
  4. LEVOTHYROXINE [Concomitant]
     Active Substance: LEVOTHYROXINE
     Indication: Post procedural hypoparathyroidism
  5. CALCIUM HYDRATE [Concomitant]
     Indication: Post procedural hypothyroidism
  6. CALCIUM HYDRATE [Concomitant]
     Indication: Post procedural hypoparathyroidism
  7. LEMBOREXANT [Concomitant]
     Active Substance: LEMBOREXANT
     Indication: Insomnia
  8. ACETAMINOPHEN [Concomitant]
     Active Substance: ACETAMINOPHEN
     Indication: Pain in extremity
  9. CELECOXIB [Concomitant]
     Active Substance: CELECOXIB
     Indication: Pain in extremity

REACTIONS (2)
  - Chronic cutaneous lupus erythematosus [Recovering/Resolving]
  - Systemic lupus erythematosus [Recovering/Resolving]
